FAERS Safety Report 4544621-4 (Version None)
Quarter: 2005Q1

REPORT INFORMATION
  Report Type: 
  Country: None (occurrence: None)
  Receive Date: 20050105
  Receipt Date: 20050103
  Transmission Date: 20050727
  Serious: Yes (Other)
  Sender: FDA-Public Use
  Company Number: US-BRISTOL-MYERS SQUIBB COMPANY-12810552

PATIENT
  Age: 37 Year
  Sex: Female
  Weight: 123 kg

DRUGS (6)
  1. METFORMIN HCL [Suspect]
     Indication: INSULIN RESISTANCE
     Route: 048
     Dates: start: 20030501, end: 20040301
  2. TOPAMAX [Interacting]
     Indication: NEUROPATHY
     Dosage: DOSE REDUCED TO 50 MG DAILY, THEN DISCONTINUED
     Route: 048
     Dates: start: 20040101, end: 20040315
  3. PAXIL [Concomitant]
     Dates: start: 20040301
  4. LORCET-HD [Concomitant]
     Indication: PAIN
     Dates: start: 20030101
  5. FLEXERIL [Concomitant]
     Indication: PAIN
     Dates: start: 20030101
  6. VICODIN [Concomitant]

REACTIONS (13)
  - ANOREXIA [None]
  - BLOOD PRESSURE INCREASED [None]
  - DRUG INTERACTION [None]
  - FATIGUE [None]
  - FEELING ABNORMAL [None]
  - HEADACHE [None]
  - METABOLIC ACIDOSIS [None]
  - PALPITATIONS [None]
  - PARAESTHESIA [None]
  - PCO2 DECREASED [None]
  - TACHYCARDIA [None]
  - THIRST [None]
  - TREMOR [None]
